FAERS Safety Report 14254684 (Version 1)
Quarter: 2017Q4

REPORT INFORMATION
  Report Type: Spontaneous
  Country: US (occurrence: US)
  Receive Date: 20171205
  Receipt Date: 20171205
  Transmission Date: 20180321
  Serious: Yes (Other)
  Sender: FDA-Public Use
  Company Number: None

PATIENT
  Age: 68 Year
  Sex: Female
  Weight: 44.91 kg

DRUGS (8)
  1. FRANKENSENCE [Concomitant]
  2. APRAZOLAM [Concomitant]
  3. LAVENDER [Concomitant]
     Active Substance: ALCOHOL
  4. ESSENTIAL OILS. [Concomitant]
     Active Substance: ESSENTIAL OILS
  5. NITROFURANTOIN MONO-MCR 100 MG GENERIC FOR MACROBID [Suspect]
     Active Substance: NITROFURANTOIN\NITROFURANTOIN MONOHYDRATE
     Indication: URINARY TRACT INFECTION
     Dosage: ?          QUANTITY:14 CAPSULE(S);?
     Route: 048
     Dates: start: 20171130, end: 20171201
  6. VETIVER CLARY SAGE BERGAMOT [Concomitant]
  7. D3 W/K2 [Concomitant]
  8. VITAMIN C [Concomitant]
     Active Substance: ASCORBIC ACID

REACTIONS (11)
  - Muscle spasms [None]
  - Dizziness [None]
  - Myalgia [None]
  - Paraesthesia oral [None]
  - Diarrhoea [None]
  - Agitation [None]
  - Anxiety [None]
  - Abdominal pain upper [None]
  - Vision blurred [None]
  - Paraesthesia [None]
  - Sluggishness [None]

NARRATIVE: CASE EVENT DATE: 20171130
